FAERS Safety Report 19877629 (Version 2)
Quarter: 2021Q3

REPORT INFORMATION
  Report Type: Spontaneous
  Country: VE (occurrence: VE)
  Receive Date: 20210923
  Receipt Date: 20210927
  Transmission Date: 20211014
  Serious: Yes (Death)
  Sender: FDA-Public Use
  Company Number: NVSC2021VE213938

PATIENT
  Sex: Male

DRUGS (1)
  1. GLIVEC [Suspect]
     Active Substance: IMATINIB MESYLATE
     Indication: CHRONIC MYELOID LEUKAEMIA
     Dosage: 400 MG (4X 100MG)
     Route: 065

REACTIONS (5)
  - Pyrexia [Fatal]
  - Malaise [Fatal]
  - COVID-19 [Fatal]
  - Hypotension [Fatal]
  - Dyspnoea [Fatal]
